FAERS Safety Report 17362739 (Version 1)
Quarter: 2020Q1

REPORT INFORMATION
  Report Type: Spontaneous
  Country: DE (occurrence: DE)
  Receive Date: 20200203
  Receipt Date: 20200203
  Transmission Date: 20200409
  Serious: Yes (Hospitalization)
  Sender: FDA-Public Use
  Company Number: DE-PFIZER INC-2020046895

PATIENT
  Age: 76 Year
  Sex: Female

DRUGS (1)
  1. LINEZOLID. [Suspect]
     Active Substance: LINEZOLID
     Indication: JOINT ARTHROPLASTY
     Dosage: UNK
     Route: 042
     Dates: start: 201909, end: 201910

REACTIONS (5)
  - Nausea [Unknown]
  - Vomiting [Unknown]
  - Fall [Unknown]
  - Femur fracture [Unknown]
  - Femoral neck fracture [Unknown]

NARRATIVE: CASE EVENT DATE: 201910
